FAERS Safety Report 8210268-1 (Version None)
Quarter: 2012Q1

REPORT INFORMATION
  Report Type: 
  Country: None (occurrence: None)
  Receive Date: 20120314
  Receipt Date: 20111123
  Transmission Date: 20120608
  Serious: No
  Sender: FDA-Public Use
  Company Number: US-ASTRAZENECA-2011SE71292

PATIENT
  Age: 37 Year
  Sex: Female

DRUGS (4)
  1. TOPROL-XL [Suspect]
     Route: 048
  2. TOPROL-XL [Suspect]
     Route: 048
     Dates: start: 20090831
  3. TOPROL-XL [Suspect]
     Route: 048
     Dates: end: 20090830
  4. TOPROL-XL [Suspect]
     Indication: VENTRICULAR TACHYCARDIA
     Route: 048
     Dates: start: 20090828

REACTIONS (4)
  - DRUG INTOLERANCE [None]
  - CHEST PAIN [None]
  - PALPITATIONS [None]
  - FATIGUE [None]
